FAERS Safety Report 13598156 (Version 1)
Quarter: 2017Q2

REPORT INFORMATION
  Report Type: Report from Study
  Country: GB (occurrence: GB)
  Receive Date: 20170531
  Receipt Date: 20170531
  Transmission Date: 20170830
  Serious: Yes (Hospitalization)
  Sender: FDA-Public Use
  Company Number: GB-B.I. PHARMACEUTICALS,INC./RIDGEFIELD-2017-BI-027906

PATIENT
  Age: 65 Year
  Sex: Male
  Weight: 81.2 kg

DRUGS (5)
  1. OXYCODONE (M/R) [Concomitant]
     Route: 048
  2. VARGATEF [Suspect]
     Active Substance: NINTEDANIB
     Indication: NON-SMALL CELL LUNG CANCER
     Route: 048
     Dates: start: 20170428
  3. DOCETAXEL. [Concomitant]
     Active Substance: DOCETAXEL
     Indication: PRODUCT USED FOR UNKNOWN INDICATION
     Route: 065
  4. OXYCODONE (M/R) [Concomitant]
     Indication: PAIN
     Dosage: DAILY DOSE: 10 MG PRN.
     Route: 048
     Dates: start: 20170330
  5. VARGATEF [Suspect]
     Active Substance: NINTEDANIB
     Route: 065

REACTIONS (2)
  - Vomiting [Recovered/Resolved]
  - Atrial fibrillation [Unknown]

NARRATIVE: CASE EVENT DATE: 20170516
